FAERS Safety Report 4304247-4 (Version None)
Quarter: 2004Q1

REPORT INFORMATION
  Report Type: 
  Country: None (occurrence: None)
  Receive Date: 20040225
  Receipt Date: 20040218
  Transmission Date: 20041129
  Serious: Yes (Life-Threatening, Hospitalization)
  Sender: FDA-Public Use
  Company Number: WAES 0402FRA00056

PATIENT
  Age: 55 Year
  Sex: Female

DRUGS (2)
  1. ATENOLOL [Concomitant]
     Indication: HYPERTENSION
     Route: 048
  2. VIOXX [Suspect]
     Indication: BACK PAIN
     Route: 048
     Dates: start: 20031030, end: 20031030

REACTIONS (1)
  - MYOCARDIAL INFARCTION [None]
